FAERS Safety Report 5833823-2 (Version None)
Quarter: 2008Q3

REPORT INFORMATION
  Report Type: 
  Country: None (occurrence: None)
  Receive Date: 20080801
  Receipt Date: 20080801
  Transmission Date: 20090109
  Serious: Yes (Hospitalization)
  Sender: FDA-Public Use
  Company Number: None

PATIENT
  Age: 77 Year
  Sex: Male

DRUGS (1)
  1. DONEPEZIL HCL [Suspect]
     Indication: DEMENTIA
     Dosage: 5 MG AT BEDTIME PO
     Route: 048
     Dates: start: 20071105, end: 20080716

REACTIONS (1)
  - BRADYCARDIA [None]
